FAERS Safety Report 8791424 (Version 1)
Quarter: 2012Q4

REPORT INFORMATION
  Report Type: Spontaneous
  Country: US (occurrence: None)
  Receive Date: 20120914
  Receipt Date: 20120914
  Transmission Date: 20130627
  Serious: Yes (Life-Threatening, Hospitalization, Other)
  Sender: FDA-Public Use
  Company Number: None

PATIENT
  Age: 50 Year
  Sex: Male

DRUGS (3)
  1. ENBREL [Suspect]
     Indication: RA
     Dosage: 25 mg once per week
  2. ENBREL [Suspect]
     Indication: RA
     Dosage: 2.5 mg 1 tab per day
  3. METHOTREXATE [Suspect]

REACTIONS (2)
  - Infection [None]
  - Sepsis [None]
